FAERS Safety Report 8272537-9 (Version None)
Quarter: 2012Q2

REPORT INFORMATION
  Report Type: 
  Country: None (occurrence: None)
  Receive Date: 20120410
  Receipt Date: 20120409
  Transmission Date: 20120825
  Serious: Yes (Death, Life-Threatening, Other)
  Sender: FDA-Public Use
  Company Number: CN-ROCHE-803947

PATIENT
  Sex: Female
  Weight: 55 kg

DRUGS (2)
  1. CYCLOSPORINE [Concomitant]
     Indication: RENAL TRANSPLANT
     Route: 048
  2. MYCOPHENOLATE MOFETIL (CELLCEPT) [Suspect]
     Indication: RENAL TRANSPLANT
     Route: 048
     Dates: start: 20040101

REACTIONS (5)
  - DIABETES MELLITUS [None]
  - KIDNEY TRANSPLANT REJECTION [None]
  - DECREASED APPETITE [None]
  - DEATH [None]
  - WEIGHT DECREASED [None]
